FAERS Safety Report 5016304-8 (Version None)
Quarter: 2006Q2

REPORT INFORMATION
  Report Type: 
  Country: None (occurrence: None)
  Receive Date: 20060424
  Receipt Date: 20050930
  Transmission Date: 20061013
  Serious: Yes (Hospitalization)
  Sender: FDA-Public Use
  Company Number: 1781-218-1

PATIENT
  Sex: Female
  Weight: 66.3 kg

DRUGS (5)
  1. DEXFERRUM [Suspect]
     Indication: ANAEMIA
     Dosage: TEST DOSE IV
     Route: 042
     Dates: start: 20050929
  2. ZOCOR [Concomitant]
  3. PLAVIX [Concomitant]
  4. LASIX [Concomitant]
  5. TOPROL-XL [Concomitant]

REACTIONS (6)
  - ANXIETY [None]
  - CONFUSIONAL STATE [None]
  - CYANOSIS [None]
  - DYSPNOEA [None]
  - HYPOTENSION [None]
  - SPEECH DISORDER [None]
